FAERS Safety Report 21245101 (Version 3)
Quarter: 2022Q4

REPORT INFORMATION
  Report Type: Spontaneous
  Country: AU (occurrence: AU)
  Receive Date: 20220823
  Receipt Date: 20221221
  Transmission Date: 20230113
  Serious: Yes (Other)
  Sender: FDA-Public Use
  Company Number: AU-LUNDBECK-DKLU3051648

PATIENT
  Sex: Male

DRUGS (9)
  1. ESCITALOPRAM OXALATE [Suspect]
     Active Substance: ESCITALOPRAM OXALATE
     Indication: Parkinson^s disease
     Dosage: 20 MG, QD
  2. RASAGILINE [Suspect]
     Active Substance: RASAGILINE
     Indication: Parkinson^s disease
     Dosage: 1 MG, QD
  3. CARBIDOPA\ENTACAPONE\LEVODOPA [Suspect]
     Active Substance: CARBIDOPA\ENTACAPONE\LEVODOPA
     Indication: Parkinson^s disease
     Dosage: 1 DF, QID
  4. ENTACAPONE [Suspect]
     Active Substance: ENTACAPONE
     Indication: Parkinson^s disease
     Dosage: UNK
  5. FLUDROCORTISONE [Suspect]
     Active Substance: FLUDROCORTISONE
     Indication: Parkinson^s disease
     Dosage: 0.2 MG, QD
  6. MIRTAZAPINE [Suspect]
     Active Substance: MIRTAZAPINE
     Indication: Parkinson^s disease
     Dosage: 15 MG, QPM
  7. ASPIRIN [Suspect]
     Active Substance: ASPIRIN
     Indication: Parkinson^s disease
     Dosage: 100 MG, QD
  8. CARBIDOPA\LEVODOPA [Suspect]
     Active Substance: CARBIDOPA\LEVODOPA
     Indication: Parkinson^s disease
     Dosage: 200MG/50MG NOCTE
  9. BUDESONIDE [Suspect]
     Active Substance: BUDESONIDE
     Indication: Parkinson^s disease
     Dosage: 27 MG, TID

REACTIONS (3)
  - Colitis microscopic [Unknown]
  - Diarrhoea [Recovered/Resolved]
  - Product use in unapproved indication [Unknown]
